FAERS Safety Report 22525014 (Version 1)
Quarter: 2023Q2

REPORT INFORMATION
  Report Type: Spontaneous
  Country: US (occurrence: US)
  Receive Date: 20230606
  Receipt Date: 20230606
  Transmission Date: 20230721
  Serious: Yes (Hospitalization)
  Sender: FDA-Public Use
  Company Number: US-EPIZYME, INC.-2023USEPIZYME0865

PATIENT

DRUGS (13)
  1. TAZVERIK [Suspect]
     Active Substance: TAZEMETOSTAT HYDROBROMIDE
     Indication: Follicular lymphoma
     Dosage: 800 MG, BID
     Route: 048
     Dates: start: 20230308
  2. TAZVERIK [Suspect]
     Active Substance: TAZEMETOSTAT HYDROBROMIDE
     Dosage: 800 MG, BID
     Route: 048
     Dates: start: 20230308
  3. ADVIL [Concomitant]
     Active Substance: IBUPROFEN
     Indication: Product used for unknown indication
  4. EXCEDRIN [Concomitant]
     Active Substance: ACETAMINOPHEN\ASPIRIN\CAFFEINE
     Indication: Migraine
  5. VITAMINS [Concomitant]
     Active Substance: VITAMINS
     Indication: Product used for unknown indication
  6. NORCO [Concomitant]
     Active Substance: ACETAMINOPHEN\HYDROCODONE BITARTRATE
     Indication: Product used for unknown indication
  7. PROCHLORPERAZINE [Concomitant]
     Active Substance: PROCHLORPERAZINE
     Indication: Product used for unknown indication
  8. TYLENOL [Concomitant]
     Active Substance: ACETAMINOPHEN
     Indication: Arthritis
  9. VITAMIN B12 [Concomitant]
     Active Substance: CYANOCOBALAMIN
     Indication: Product used for unknown indication
  10. ZOFRAN [Concomitant]
     Active Substance: ONDANSETRON HYDROCHLORIDE
     Indication: Product used for unknown indication
  11. MAGNESIUM CITRATE [Concomitant]
     Active Substance: MAGNESIUM CITRATE
     Indication: Product used for unknown indication
  12. LACTULOSE [Concomitant]
     Active Substance: LACTULOSE
     Indication: Product used for unknown indication
  13. DOCUSATE [Concomitant]
     Active Substance: DOCUSATE
     Indication: Product used for unknown indication
     Route: 065

REACTIONS (12)
  - Intestinal obstruction [Not Recovered/Not Resolved]
  - Ageusia [Not Recovered/Not Resolved]
  - Panic attack [Not Recovered/Not Resolved]
  - Constipation [Not Recovered/Not Resolved]
  - Malaise [Not Recovered/Not Resolved]
  - Haemorrhoidal haemorrhage [Not Recovered/Not Resolved]
  - Decreased appetite [Not Recovered/Not Resolved]
  - Dry skin [Not Recovered/Not Resolved]
  - Taste disorder [Not Recovered/Not Resolved]
  - Bone pain [Not Recovered/Not Resolved]
  - Nausea [Not Recovered/Not Resolved]
  - Headache [Not Recovered/Not Resolved]
